FAERS Safety Report 4633695-8 (Version None)
Quarter: 2005Q2

REPORT INFORMATION
  Report Type: 
  Country: None (occurrence: None)
  Receive Date: 20050325
  Receipt Date: 20041227
  Transmission Date: 20051028
  Serious: No
  Sender: FDA-Public Use
  Company Number: USA041286939

PATIENT
  Age: 66 Year
  Sex: Female

DRUGS (2)
  1. FORTEO (TERIPARATIDE) [Suspect]
     Indication: BODY HEIGHT DECREASED
     Dosage: 20 UG/1 DAY
     Dates: start: 20041001
  2. SALINE (SODIUM CHLORIDE) [Suspect]

REACTIONS (1)
  - MEDICATION ERROR [None]
